FAERS Safety Report 9042993 (Version 1)
Quarter: 2013Q1

REPORT INFORMATION
  Report Type: Report from Study
  Country: US (occurrence: US)
  Receive Date: 20130129
  Receipt Date: 20130129
  Transmission Date: 20140127
  Serious: No
  Sender: FDA-Public Use
  Company Number: US-ABBOTT-12P-163-0912512-00

PATIENT
  Age: 17 Year
  Sex: Male

DRUGS (4)
  1. HUMIRA 40 MG/0.8 ML PEN [Suspect]
     Indication: CROHN^S DISEASE
     Dates: start: 20120203
  2. LEVSIN [Concomitant]
     Indication: PRODUCT USED FOR UNKNOWN INDICATION
     Dosage: TAKE WITH EACH MEAL
  3. PERCOCET [Concomitant]
     Indication: PAIN
     Dosage: AS NEEDED- AVERAGING 1 TO 2 PER DAY
  4. PERCOCET [Concomitant]
     Indication: CROHN^S DISEASE

REACTIONS (2)
  - Nausea [Not Recovered/Not Resolved]
  - Injection site pain [Unknown]
